FAERS Safety Report 24204818 (Version 1)
Quarter: 2024Q3

REPORT INFORMATION
  Report Type: Spontaneous
  Country: MX (occurrence: MX)
  Receive Date: 20240813
  Receipt Date: 20240813
  Transmission Date: 20241017
  Serious: Yes (Hospitalization)
  Sender: LUNDBECK
  Company Number: MX-LUNDBECK-DKLU4002717

PATIENT

DRUGS (2)
  1. CLOBAZAM [Suspect]
     Active Substance: CLOBAZAM
     Indication: Epilepsy
     Dosage: 10 MILLIGRAM
     Route: 048
     Dates: start: 2015
  2. CLOBAZAM [Suspect]
     Active Substance: CLOBAZAM
     Indication: Percutaneous coronary intervention

REACTIONS (1)
  - Respiratory tract infection [Unknown]

NARRATIVE: CASE EVENT DATE: 20240701
